FAERS Safety Report 7493444-5 (Version None)
Quarter: 2011Q2

REPORT INFORMATION
  Report Type: 
  Country: None (occurrence: None)
  Receive Date: 20110520
  Receipt Date: 20110426
  Transmission Date: 20111010
  Serious: No
  Sender: FDA-Public Use
  Company Number: US-B.I. PHARMACEUTICALS,INC./RIDGEFIELD-2011-BP-13447BP

PATIENT
  Sex: Male

DRUGS (9)
  1. BUSPIRONE HCL [Concomitant]
     Indication: ANXIETY
     Dosage: 15 MG
     Route: 048
  2. BUSPIRONE HCL [Concomitant]
     Indication: AGITATION
  3. SYMBICORT [Concomitant]
     Indication: CHRONIC OBSTRUCTIVE PULMONARY DISEASE
  4. FLOVENT [Concomitant]
     Indication: ASTHMA
     Route: 055
  5. DIOVAN [Concomitant]
     Indication: HYPERTENSION
     Route: 048
  6. CLARITIN [Concomitant]
     Indication: MULTIPLE ALLERGIES
     Route: 048
  7. SPIRIVA [Suspect]
     Indication: CHRONIC OBSTRUCTIVE PULMONARY DISEASE
     Dosage: 18 MCG
     Route: 055
     Dates: start: 20100901
  8. SYMBICORT [Concomitant]
     Indication: ASTHMA
     Route: 055
  9. PROAIR HFA [Concomitant]
     Indication: ASTHMA
     Route: 055

REACTIONS (2)
  - DYSPNOEA [None]
  - WHEEZING [None]
